FAERS Safety Report 19115342 (Version 1)
Quarter: 2021Q2

REPORT INFORMATION
  Report Type: Report from Study
  Country: US (occurrence: US)
  Receive Date: 20210409
  Receipt Date: 20210409
  Transmission Date: 20210717
  Serious: Yes (Hospitalization)
  Sender: FDA-Public Use
  Company Number: US-EMD SERONO-9230258

PATIENT
  Age: 39 Year
  Sex: Male

DRUGS (2)
  1. REBIF [Suspect]
     Active Substance: INTERFERON BETA-1A
     Indication: PRODUCT USED FOR UNKNOWN INDICATION
     Dosage: PREVIOUSLY ON REBIDOSE
     Route: 058
     Dates: end: 2021
  2. REBIF [Suspect]
     Active Substance: INTERFERON BETA-1A
     Dosage: RESTART DATE? 01?APR?2021
     Route: 058

REACTIONS (5)
  - Hypoaesthesia [Recovered/Resolved]
  - Disease recurrence [Recovered/Resolved]
  - Product dose omission issue [Recovered/Resolved]
  - Paraesthesia [Recovered/Resolved]
  - Visual impairment [Recovered/Resolved]

NARRATIVE: CASE EVENT DATE: 202103
